FAERS Safety Report 9787301 (Version 4)
Quarter: 2014Q2

REPORT INFORMATION
  Report Type: Spontaneous
  Country: JP (occurrence: JP)
  Receive Date: 20131230
  Receipt Date: 20140410
  Transmission Date: 20141212
  Serious: Yes (Hospitalization)
  Sender: FDA-Public Use
  Company Number: JP-ROCHE-1327266

PATIENT
  Age: 79 Year
  Sex: Male

DRUGS (3)
  1. LUCENTIS [Suspect]
     Indication: RETINAL VEIN OCCLUSION
     Route: 050
     Dates: start: 20131016
  2. LUCENTIS [Suspect]
     Route: 050
     Dates: start: 20131211, end: 20131211
  3. BAKTAR [Concomitant]
     Indication: ORGANISING PNEUMONIA

REACTIONS (2)
  - Cerebral infarction [Recovering/Resolving]
  - Cystoid macular oedema [Unknown]
